FAERS Safety Report 4264062-7 (Version None)
Quarter: 2004Q1

REPORT INFORMATION
  Report Type: 
  Country: None (occurrence: None)
  Receive Date: 20040102
  Receipt Date: 20031224
  Transmission Date: 20041129
  Serious: Yes (Hospitalization)
  Sender: FDA-Public Use
  Company Number: US-JNJFOC-20031205131

PATIENT
  Age: 77 Year
  Sex: Female

DRUGS (9)
  1. INFLIXIMAB (INFLIXIMAB, RECOMBINANT) LYOPHILIZED POWDER [Suspect]
     Indication: RHEUMATOID ARTHRITIS
     Dosage: INTRAVENOUS
     Route: 042
     Dates: start: 20000807
  2. CELEBREX [Concomitant]
  3. ZOCOR [Concomitant]
  4. METHOTREXATE [Concomitant]
  5. TRIAMTERENE (TRIAMTERENE) [Concomitant]
  6. FOLIC ACID [Concomitant]
  7. CITRACAL (CALCIUM CITRATE) [Concomitant]
  8. CENTRUM SILVER (CENTRUM SILVER) [Concomitant]
  9. VITAMIN E [Concomitant]

REACTIONS (6)
  - ASTHENIA [None]
  - DYSPNOEA [None]
  - GRANULOMA [None]
  - HEART RATE IRREGULAR [None]
  - PALPITATIONS [None]
  - VENTRICULAR EXTRASYSTOLES [None]
